FAERS Safety Report 15751734 (Version 1)
Quarter: 2018Q4

REPORT INFORMATION
  Report Type: Spontaneous
  Country: GB (occurrence: GB)
  Receive Date: 20181221
  Receipt Date: 20181221
  Transmission Date: 20190205
  Serious: No
  Sender: FDA-Public Use
  Company Number: GB-EMERGENT BIOSOLUTIONS-18000247SP

PATIENT
  Age: 41 Year
  Sex: Male

DRUGS (1)
  1. BAT [Suspect]
     Active Substance: EQUINE BOTULINUM NEUROTOXIN A/B/C/D/E/F/G IMMUNE FAB2
     Dosage: UNK
     Dates: start: 2018

REACTIONS (1)
  - Wrong device used [Recovered/Resolved]

NARRATIVE: CASE EVENT DATE: 201810
